FAERS Safety Report 5519395-0 (Version None)
Quarter: 2007Q4

REPORT INFORMATION
  Report Type: 
  Country: None (occurrence: None)
  Receive Date: 20071116
  Receipt Date: 20071109
  Transmission Date: 20080405
  Serious: Yes (Hospitalization)
  Sender: FDA-Public Use
  Company Number: B0493422A

PATIENT
  Age: 76 Year
  Sex: Male

DRUGS (6)
  1. ACETAMINOPHEN [Suspect]
     Indication: PYREXIA
     Route: 048
     Dates: start: 20070725, end: 20070729
  2. CLARITHROMYCIN [Suspect]
     Indication: PYREXIA
     Dosage: 250MG TWICE PER DAY
     Route: 048
     Dates: start: 20070720, end: 20070727
  3. WARFARIN SODIUM [Suspect]
     Dates: start: 20020101, end: 20070729
  4. NIFEDIPINE [Concomitant]
     Dosage: 20MG TWICE PER DAY
     Route: 048
  5. AMINAFTONE [Concomitant]
     Dosage: 1TAB THREE TIMES PER DAY
     Route: 048
  6. VITAMIN B [Concomitant]
     Dosage: 1TAB PER DAY
     Route: 048

REACTIONS (3)
  - ANAEMIA [None]
  - HAEMATEMESIS [None]
  - MELAENA [None]
